FAERS Safety Report 4280696-8 (Version None)
Quarter: 2004Q1

REPORT INFORMATION
  Report Type: 
  Country: None (occurrence: None)
  Receive Date: 20040127
  Receipt Date: 20040112
  Transmission Date: 20041129
  Serious: Yes (Hospitalization)
  Sender: FDA-Public Use
  Company Number: 172046

PATIENT
  Age: 69 Year
  Sex: Female
  Weight: 81.6475 kg

DRUGS (6)
  1. AVONEX [Suspect]
     Indication: MULTIPLE SCLEROSIS
     Dosage: 30 MCG QW IM
     Route: 030
     Dates: start: 19991001, end: 20030801
  2. BACLOFEN [Concomitant]
  3. SINEMET [Concomitant]
  4. AMITRIPTYLINE [Concomitant]
  5. COUMADIN [Concomitant]
  6. DIGOXIN [Concomitant]

REACTIONS (7)
  - BRONCHITIS [None]
  - CONDITION AGGRAVATED [None]
  - HIP FRACTURE [None]
  - MOBILITY DECREASED [None]
  - MULTIPLE SCLEROSIS [None]
  - MUSCLE SPASMS [None]
  - WHEELCHAIR USER [None]
